FAERS Safety Report 19469207 (Version 2)
Quarter: 2021Q3

REPORT INFORMATION
  Report Type: Report from Study
  Country: None (occurrence: CO)
  Receive Date: 20210629
  Receipt Date: 20210726
  Transmission Date: 20211014
  Serious: Yes (Other)
  Sender: FDA-Public Use
  Company Number: CO-ABBVIE-20K-036-3423992-00

PATIENT
  Age: 55 Year
  Sex: Female

DRUGS (2)
  1. HUMIRA [Suspect]
     Active Substance: ADALIMUMAB
     Indication: RHEUMATOID ARTHRITIS
     Dosage: CITRATE FREE
     Route: 058
     Dates: end: 20210527
  2. HUMIRA [Suspect]
     Active Substance: ADALIMUMAB
     Indication: RHEUMATOID ARTHRITIS
     Route: 058
     Dates: start: 20140501

REACTIONS (39)
  - Depression [Recovering/Resolving]
  - Asthenia [Recovering/Resolving]
  - Hand deformity [Not Recovered/Not Resolved]
  - Knee deformity [Recovering/Resolving]
  - Arthropathy [Unknown]
  - Syncope [Not Recovered/Not Resolved]
  - Arthritis [Not Recovered/Not Resolved]
  - Pain [Not Recovered/Not Resolved]
  - Tachycardia [Not Recovered/Not Resolved]
  - Discomfort [Not Recovered/Not Resolved]
  - Bronchitis viral [Recovering/Resolving]
  - Asthenia [Recovered/Resolved]
  - Dry mouth [Recovering/Resolving]
  - Pallor [Not Recovered/Not Resolved]
  - Osteoarthritis [Not Recovered/Not Resolved]
  - Foot deformity [Not Recovered/Not Resolved]
  - Gait disturbance [Not Recovered/Not Resolved]
  - Spinal pain [Not Recovered/Not Resolved]
  - Abscess limb [Unknown]
  - Injection site pruritus [Unknown]
  - Choking [Recovering/Resolving]
  - Insomnia [Unknown]
  - Urinary tract infection [Not Recovered/Not Resolved]
  - Speech disorder [Not Recovered/Not Resolved]
  - Abscess limb [Recovered/Resolved]
  - Therapeutic product effect incomplete [Unknown]
  - Lung disorder [Not Recovered/Not Resolved]
  - Hyperhidrosis [Not Recovered/Not Resolved]
  - Thirst [Recovering/Resolving]
  - Groin pain [Not Recovered/Not Resolved]
  - Mobility decreased [Not Recovered/Not Resolved]
  - Immunodeficiency [Not Recovered/Not Resolved]
  - Hyperhidrosis [Recovered/Resolved]
  - Sleep disorder [Not Recovered/Not Resolved]
  - Nephrolithiasis [Not Recovered/Not Resolved]
  - Tachycardia [Recovered/Resolved]
  - Neck pain [Not Recovered/Not Resolved]
  - Injection site erythema [Unknown]
  - COVID-19 [Recovering/Resolving]

NARRATIVE: CASE EVENT DATE: 2020
